FAERS Safety Report 10694151 (Version 1)
Quarter: 2015Q1

REPORT INFORMATION
  Report Type: Spontaneous
  Country: US (occurrence: US)
  Receive Date: 20150106
  Receipt Date: 20150106
  Transmission Date: 20150721
  Serious: Yes (Death, Other)
  Sender: FDA-Public Use
  Company Number: US-GILEAD-2015-0130227

PATIENT
  Age: 76 Year
  Sex: Female

DRUGS (31)
  1. ALPHAGAN P [Concomitant]
     Active Substance: BRIMONIDINE TARTRATE
  2. SIMVASTATIN. [Concomitant]
     Active Substance: SIMVASTATIN
  3. PRED FORTE [Concomitant]
     Active Substance: PREDNISOLONE ACETATE
  4. LOPIDINE [Concomitant]
  5. LEVEMIR [Concomitant]
     Active Substance: INSULIN DETEMIR
  6. DIOVAN [Concomitant]
     Active Substance: VALSARTAN
  7. AZOPT [Concomitant]
     Active Substance: BRINZOLAMIDE
  8. METHAZOLAMIDE. [Concomitant]
     Active Substance: METHAZOLAMIDE
  9. CALCITRIOL. [Concomitant]
     Active Substance: CALCITRIOL
  10. TRAMADOL                           /00599202/ [Concomitant]
     Active Substance: TRAMADOL
  11. PREDNISONE. [Concomitant]
     Active Substance: PREDNISONE
  12. LASIX [Concomitant]
     Active Substance: FUROSEMIDE
  13. VITAMINS WITH MINERALS [Concomitant]
     Active Substance: MINERALS\VITAMINS
  14. LETAIRIS [Suspect]
     Active Substance: AMBRISENTAN
     Indication: PULMONARY ARTERIAL HYPERTENSION
     Dosage: 10 MG, QD
     Route: 065
     Dates: start: 20080918, end: 20141116
  15. ATROPINE [Concomitant]
     Active Substance: ATROPINE
  16. TIMOLOL MALEATE. [Concomitant]
     Active Substance: TIMOLOL MALEATE
  17. HYDROXYCHLOROQUINE SULFATE. [Concomitant]
     Active Substance: HYDROXYCHLOROQUINE SULFATE
  18. PANTOPRAZOLE [Concomitant]
     Active Substance: PANTOPRAZOLE SODIUM
  19. SPIRONOLACTONE. [Concomitant]
     Active Substance: SPIRONOLACTONE
  20. B12                                /00056201/ [Concomitant]
  21. LANTUS [Concomitant]
     Active Substance: INSULIN GLARGINE
  22. ASPIRIN                            /00002701/ [Concomitant]
     Active Substance: ASPIRIN
  23. AUGMENTIN [Concomitant]
     Active Substance: AMOXICILLIN\CLAVULANATE POTASSIUM
  24. GLIMEPIRIDE. [Concomitant]
     Active Substance: GLIMEPIRIDE
  25. METFORMIN [Concomitant]
     Active Substance: METFORMIN HYDROCHLORIDE
  26. CYCLOPENTOLATE [Concomitant]
     Active Substance: CYCLOPENTOLATE
  27. NOVOLOG [Concomitant]
     Active Substance: INSULIN ASPART
  28. GABAPENTIN. [Concomitant]
     Active Substance: GABAPENTIN
  29. PLAVIX [Concomitant]
     Active Substance: CLOPIDOGREL BISULFATE
  30. NITROGLYCERIN. [Concomitant]
     Active Substance: NITROGLYCERIN
  31. MYCOPHENOLATE MOFETIL. [Concomitant]
     Active Substance: MYCOPHENOLATE MOFETIL

REACTIONS (1)
  - Pulmonary hypertension [Fatal]
